FAERS Safety Report 14323006 (Version 1)
Quarter: 2017Q4

REPORT INFORMATION
  Report Type: Report from Study
  Country: DE (occurrence: DE)
  Receive Date: 20171226
  Receipt Date: 20171226
  Transmission Date: 20180321
  Serious: Yes (Hospitalization)
  Sender: FDA-Public Use
  Company Number: DE-ROCHE-1983592

PATIENT
  Age: 24 Year
  Sex: Male
  Weight: 110 kg

DRUGS (7)
  1. TRIAMCINOLON [Concomitant]
     Indication: RHEUMATOID ARTHRITIS
     Route: 014
     Dates: start: 20170616, end: 20170616
  2. TOCILIZUMAB. [Suspect]
     Active Substance: TOCILIZUMAB
     Indication: RHEUMATOID ARTHRITIS
     Route: 058
     Dates: start: 20170519, end: 20170810
  3. COLECALCIFEROL [Concomitant]
     Active Substance: CHOLECALCIFEROL
     Dosage: 1-0-0
     Route: 048
     Dates: start: 20170222
  4. METHOTREXATE. [Concomitant]
     Active Substance: METHOTREXATE
     Indication: RHEUMATOID ARTHRITIS
     Route: 058
     Dates: start: 20170222
  5. PANTOPRAZOL [Concomitant]
     Active Substance: PANTOPRAZOLE SODIUM
     Dosage: 1-0-1
     Route: 048
     Dates: start: 20170119
  6. FOLIC ACID. [Concomitant]
     Active Substance: FOLIC ACID
     Route: 048
     Dates: start: 20170223
  7. PREDNISOLON [Concomitant]
     Active Substance: PREDNISOLONE
     Indication: RHEUMATOID ARTHRITIS
     Route: 048

REACTIONS (2)
  - Rheumatoid arthritis [Recovering/Resolving]
  - Joint effusion [Recovering/Resolving]

NARRATIVE: CASE EVENT DATE: 20170613
